FAERS Safety Report 17307312 (Version 2)
Quarter: 2020Q1

REPORT INFORMATION
  Report Type: Spontaneous
  Country: US (occurrence: US)
  Receive Date: 20200123
  Receipt Date: 20200219
  Transmission Date: 20200409
  Serious: No
  Sender: FDA-Public Use
  Company Number: US-ASTRAZENECA-2020SE00276

PATIENT
  Sex: Male

DRUGS (1)
  1. BYDUREON BCISE [Suspect]
     Active Substance: EXENATIDE
     Dosage: 2.0MG UNKNOWN
     Route: 065

REACTIONS (4)
  - Incorrect dose administered by device [Not Recovered/Not Resolved]
  - Intentional device misuse [Unknown]
  - Injection site cyst [Not Recovered/Not Resolved]
  - Device leakage [Unknown]
